FAERS Safety Report 11997536 (Version 1)
Quarter: 2016Q1

REPORT INFORMATION
  Report Type: Report from Study
  Country: DE (occurrence: DE)
  Receive Date: 20160203
  Receipt Date: 20160203
  Transmission Date: 20160526
  Serious: Yes (Other)
  Sender: FDA-Public Use
  Company Number: DE-GILEAD-2015-0151222

PATIENT
  Age: 61 Year
  Sex: Male
  Weight: 66 kg

DRUGS (5)
  1. M-LONG [Concomitant]
  2. RIBAVIRIN. [Suspect]
     Active Substance: RIBAVIRIN
     Indication: CHRONIC HEPATITIS C
     Dosage: 1000 MG, QD
     Route: 048
     Dates: start: 20150325, end: 20150616
  3. LEDIPASVIR/SOFOSBUVIR [Suspect]
     Active Substance: LEDIPASVIR\SOFOSBUVIR
     Indication: CHRONIC HEPATITIS C
     Dosage: 1 DF, QD
     Route: 048
     Dates: start: 20150325, end: 20150616
  4. MST CONTIN [Concomitant]
  5. RAMILICH [Concomitant]
     Active Substance: RAMIPRIL

REACTIONS (8)
  - Weight decreased [Unknown]
  - Hepatitis C [Not Recovered/Not Resolved]
  - Cough [Unknown]
  - Rash [Recovered/Resolved]
  - Flank pain [Not Recovered/Not Resolved]
  - Drug ineffective [Not Recovered/Not Resolved]
  - Bronchial carcinoma [Unknown]
  - Asthenia [Unknown]

NARRATIVE: CASE EVENT DATE: 20150401
